FAERS Safety Report 26189792 (Version 1)
Quarter: 2025Q4

REPORT INFORMATION
  Report Type: Report from Study
  Country: PK (occurrence: PK)
  Receive Date: 20251223
  Receipt Date: 20251223
  Transmission Date: 20260117
  Serious: Yes (Death)
  Sender: ROCHE
  Company Number: PK-ROCHE-10000462560

PATIENT
  Age: 56 Year
  Sex: Female

DRUGS (1)
  1. RITUXIMAB [Suspect]
     Active Substance: RITUXIMAB
     Indication: Diffuse large B-cell lymphoma
     Route: 041
     Dates: start: 20251007

REACTIONS (5)
  - Death [Fatal]
  - Pain [Unknown]
  - Asthenia [Unknown]
  - General physical health deterioration [Unknown]
  - Depressed mood [Unknown]

NARRATIVE: CASE EVENT DATE: 20251126
